FAERS Safety Report 8973855 (Version 1)
Quarter: 2012Q4

REPORT INFORMATION
  Report Type: 
  Country: US (occurrence: US)
  Receive Date: 20121218
  Receipt Date: 20121218
  Transmission Date: 20130627
  Serious: No
  Sender: FDA-Public Use
  Company Number: US-BRISTOL-MYERS SQUIBB COMPANY-16892523

PATIENT
  Age: 47 Year
  Sex: Male
  Weight: 103.4 kg

DRUGS (3)
  1. ABILIFY [Suspect]
  2. WELLBUTRIN XL [Concomitant]
  3. LORAZEPAM [Concomitant]

REACTIONS (4)
  - Blood cholesterol increased [Unknown]
  - Amnesia [Unknown]
  - Insomnia [Unknown]
  - Weight increased [Unknown]
